FAERS Safety Report 9143338 (Version 2)
Quarter: 2013Q2

REPORT INFORMATION
  Report Type: Spontaneous
  Country: AE (occurrence: PH)
  Receive Date: 20130306
  Receipt Date: 20130411
  Transmission Date: 20140414
  Serious: Yes (Death)
  Sender: FDA-Public Use
  Company Number: AE-ABBOTT-13P-166-1058919-00

PATIENT
  Sex: Male

DRUGS (3)
  1. HUMIRA [Suspect]
     Indication: CROHN^S DISEASE
     Route: 058
  2. IMURAN [Concomitant]
     Indication: CROHN^S DISEASE
     Dosage: 100 MG DAILY
     Route: 048
  3. ANTI-DIABETIC [Concomitant]
     Indication: DIABETES MELLITUS

REACTIONS (1)
  - Myocardial infarction [Fatal]
